FAERS Safety Report 6908000-4 (Version None)
Quarter: 2010Q3

REPORT INFORMATION
  Report Type: 
  Country: None (occurrence: None)
  Receive Date: 20100712
  Receipt Date: 20100409
  Transmission Date: 20110219
  Serious: No
  Sender: FDA-Public Use
  Company Number: US-000094

PATIENT
  Sex: Male
  Weight: 34 kg

DRUGS (3)
  1. KUVAN [Suspect]
     Indication: PHENYLKETONURIA
     Dosage: 650 MG QD ORAL
     Route: 048
     Dates: start: 20080701
  2. FERROUS GLUCONATE [Concomitant]
  3. GINKGO /01003101/ [Concomitant]

REACTIONS (2)
  - LYMPHADENOPATHY [None]
  - POLLAKIURIA [None]
